FAERS Safety Report 25207630 (Version 1)
Quarter: 2025Q2

REPORT INFORMATION
  Report Type: Spontaneous
  Country: PK (occurrence: PK)
  Receive Date: 20250417
  Receipt Date: 20250417
  Transmission Date: 20250717
  Serious: Yes (Hospitalization, Other)
  Sender: RANBAXY
  Company Number: PK-SUN PHARMACEUTICAL INDUSTRIES LTD-2025R1-503538

PATIENT
  Age: 37 Year
  Sex: Male

DRUGS (1)
  1. DICLOFENAC [Suspect]
     Active Substance: DICLOFENAC
     Indication: Product used for unknown indication
     Route: 030

REACTIONS (4)
  - Clostridial infection [Recovered/Resolved]
  - Compartment syndrome [Recovered/Resolved]
  - Gas gangrene [Recovered/Resolved]
  - Sepsis [Recovered/Resolved]
